FAERS Safety Report 19065616 (Version 2)
Quarter: 2021Q2

REPORT INFORMATION
  Report Type: Spontaneous
  Country: JP (occurrence: JP)
  Receive Date: 20210327
  Receipt Date: 20210624
  Transmission Date: 20210717
  Serious: Yes (Death, Other)
  Sender: FDA-Public Use
  Company Number: JP-UNITED THERAPEUTICS-UNT-2018-009326

PATIENT
  Age: 44 Year
  Sex: Female
  Weight: 35.7 kg

DRUGS (16)
  1. REMODULIN [Suspect]
     Active Substance: TREPROSTINIL
     Dosage: UNK, CONTINUING AT DOSING RATE OF 9 MCL/HR
     Route: 058
     Dates: start: 201806
  2. REMODULIN [Suspect]
     Active Substance: TREPROSTINIL
     Dosage: TARGET DOSE WAS ACHIEVED (UNKNOWN DOSE), CONTINUING
     Route: 058
     Dates: start: 2018
  3. FERROUS CITRATE NA [Concomitant]
     Active Substance: SODIUM FERROUS CITRATE
     Indication: PRODUCT USED FOR UNKNOWN INDICATION
     Dosage: UNK
     Route: 048
     Dates: end: 20210315
  4. TRAMCET [Concomitant]
     Active Substance: ACETAMINOPHEN\TRAMADOL
     Indication: PROPHYLAXIS
     Dosage: 1 DF, PER DAY
     Route: 048
     Dates: start: 20180612, end: 20210315
  5. REMODULIN [Suspect]
     Active Substance: TREPROSTINIL
     Indication: PULMONARY ARTERIAL HYPERTENSION
     Dosage: 0.001 ?G/KG, CONTINUING
     Route: 058
     Dates: start: 20180612, end: 201806
  6. REMODULIN [Suspect]
     Active Substance: TREPROSTINIL
     Dosage: UNK, CONTINUING (TO BE INCREASED TO RATE OF 7 MCL/HR)
     Route: 058
     Dates: start: 201806, end: 201806
  7. REMODULIN [Suspect]
     Active Substance: TREPROSTINIL
     Dosage: 0.015 ?G/KG, CONTINUING
     Route: 058
     Dates: end: 20210315
  8. UPTRAVI [Concomitant]
     Active Substance: SELEXIPAG
     Indication: PULMONARY ARTERIAL HYPERTENSION
     Dosage: 3.2 MG, QD (PER DAY)
     Route: 048
     Dates: end: 20210315
  9. DIART [Concomitant]
     Active Substance: AZOSEMIDE
     Indication: PULMONARY ARTERIAL HYPERTENSION
     Dosage: UNK
     Route: 048
     Dates: end: 20210315
  10. REMODULIN [Suspect]
     Active Substance: TREPROSTINIL
     Dosage: UNK, CONTINUING AT DOSING RATE OF 4.5 MCL/HR
     Route: 058
     Dates: start: 201806, end: 201806
  11. REMODULIN [Suspect]
     Active Substance: TREPROSTINIL
     Dosage: UNK, CONTINUING AT DOSING RATE OF 23 MCL/HR
     Route: 058
     Dates: start: 2018, end: 201807
  12. ADCIRCA [Concomitant]
     Active Substance: TADALAFIL
     Indication: PULMONARY ARTERIAL HYPERTENSION
     Dosage: UNK
     Route: 048
     Dates: end: 20210315
  13. OPSUMIT [Concomitant]
     Active Substance: MACITENTAN
     Indication: PRODUCT USED FOR UNKNOWN INDICATION
     Dosage: UNK
     Route: 048
  14. BOSENTAN HYDRATE [Concomitant]
     Active Substance: BOSENTAN
     Indication: PULMONARY ARTERIAL HYPERTENSION
     Dosage: UNK
     Route: 048
     Dates: end: 20210315
  15. REMODULIN [Suspect]
     Active Substance: TREPROSTINIL
     Dosage: 0.010 ?G/KG, CONTINUING
     Route: 058
     Dates: start: 201807
  16. SPIRONOLACTONE. [Concomitant]
     Active Substance: SPIRONOLACTONE
     Indication: PULMONARY ARTERIAL HYPERTENSION
     Dosage: UNK
     Route: 048
     Dates: end: 20210315

REACTIONS (10)
  - Injection site rash [Not Recovered/Not Resolved]
  - Injection site pruritus [Recovering/Resolving]
  - Hypoxia [Unknown]
  - Nausea [Recovering/Resolving]
  - Injection site pain [Recovering/Resolving]
  - Injection site erythema [Recovering/Resolving]
  - Injection site discharge [Recovering/Resolving]
  - Erythema [Recovering/Resolving]
  - Pulmonary hypertension [Fatal]
  - Rash pruritic [Not Recovered/Not Resolved]

NARRATIVE: CASE EVENT DATE: 201806
